FAERS Safety Report 20863670 (Version 1)
Quarter: 2022Q2

REPORT INFORMATION
  Report Type: Spontaneous
  Country: US (occurrence: US)
  Receive Date: 20220523
  Receipt Date: 20220523
  Transmission Date: 20220721
  Serious: No
  Sender: FDA-Public Use
  Company Number: US-SA-SAC20220519000560

PATIENT
  Age: 61 Year
  Sex: Female

DRUGS (1)
  1. DUPIXENT [Suspect]
     Active Substance: DUPILUMAB
     Indication: Dermatitis atopic
     Dosage: 300 MG/2 ML, 1X
     Route: 058

REACTIONS (4)
  - Sleep disorder [Unknown]
  - Impaired quality of life [Unknown]
  - Dermatitis atopic [Unknown]
  - Product use issue [Unknown]

NARRATIVE: CASE EVENT DATE: 20220517
